FAERS Safety Report 9773726 (Version 1)
Quarter: 2013Q4

REPORT INFORMATION
  Report Type: Spontaneous
  Country: AU (occurrence: None)
  Receive Date: 20131218
  Receipt Date: 20131218
  Transmission Date: 20140711
  Serious: Yes (Other)
  Sender: FDA-Public Use
  Company Number: 2013000339

PATIENT
  Age: 82 Year
  Sex: Female

DRUGS (5)
  1. ACEON (PERINDOPRIL ERBUMINE) TABLET [Suspect]
     Indication: PRODUCT USED FOR UNKNOWN INDICATION
  2. ASPIRIN (ASPIRIN) [Concomitant]
  3. OMEPRAZOLE (OMEPRAZOLE) [Concomitant]
  4. OSTELIN (ERGOCALCIFEROL) [Concomitant]
  5. PROGYNOVA (ESTRADIOL VALERATE) [Concomitant]

REACTIONS (5)
  - Dysphagia [None]
  - Local swelling [None]
  - Swollen tongue [None]
  - Lip swelling [None]
  - Oedema mouth [None]
